FAERS Safety Report 17865567 (Version 1)
Quarter: 2020Q2

REPORT INFORMATION
  Report Type: Spontaneous
  Country: CN (occurrence: CN)
  Receive Date: 20200605
  Receipt Date: 20200605
  Transmission Date: 20200714
  Serious: Yes (Hospitalization)
  Sender: FDA-Public Use
  Company Number: CN-PFIZER INC-2020218546

PATIENT
  Age: 55 Year
  Sex: Male
  Weight: 65 kg

DRUGS (6)
  1. SODIUM CHLORIDE. [Concomitant]
     Active Substance: SODIUM CHLORIDE
     Indication: ANTI-INFECTIVE THERAPY
     Dosage: 100 ML, 3X/DAY
     Route: 041
     Dates: start: 20200525, end: 20200527
  2. SODIUM CHLORIDE. [Concomitant]
     Active Substance: SODIUM CHLORIDE
     Dosage: 100 ML, 3X/DAY
     Route: 041
     Dates: start: 20200525, end: 20200527
  3. TAZOCIN [Suspect]
     Active Substance: PIPERACILLIN SODIUM\TAZOBACTAM SODIUM
     Indication: HAEMOPTYSIS
  4. TAZOCIN [Suspect]
     Active Substance: PIPERACILLIN SODIUM\TAZOBACTAM SODIUM
     Indication: BRONCHIECTASIS
     Dosage: 4.5 G, 3X/DAY
     Route: 041
     Dates: start: 20200525, end: 20200527
  5. UROKINASE [Suspect]
     Active Substance: UROKINASE
     Indication: THERAPEUTIC PROCEDURE
     Dosage: 50000 IU, 1X/DAY
     Route: 034
     Dates: start: 20200525, end: 20200525
  6. DOXYCYCLINE. [Suspect]
     Active Substance: DOXYCYCLINE
     Indication: ANTI-INFECTIVE THERAPY
     Dosage: 100 MG, 2X/DAY
     Route: 048
     Dates: start: 20200525, end: 20200527

REACTIONS (2)
  - Rash pruritic [Recovering/Resolving]
  - Purpura [Recovering/Resolving]

NARRATIVE: CASE EVENT DATE: 20200526
